FAERS Safety Report 19969725 (Version 1)
Quarter: 2021Q4

REPORT INFORMATION
  Report Type: Spontaneous
  Country: CN (occurrence: CN)
  Receive Date: 20211019
  Receipt Date: 20211019
  Transmission Date: 20220303
  Serious: Yes (Hospitalization, Other)
  Sender: FDA-Public Use
  Company Number: CN-PFIZER INC-202101343193

PATIENT
  Age: 31 Year
  Sex: Female
  Weight: 51 kg

DRUGS (4)
  1. FLUCONAZOLE [Suspect]
     Active Substance: FLUCONAZOLE
     Indication: Fungal infection
     Dosage: 150 MG, 1X/DAY
     Route: 048
     Dates: start: 20210111, end: 20210111
  2. DYDROGESTERONE [Suspect]
     Active Substance: DYDROGESTERONE
     Indication: Uterine haemorrhage
     Dosage: 1 DF, 2X/DAY
     Route: 048
     Dates: start: 20210120, end: 20210127
  3. COMPOUND GLYCYRRHIZIN [GLYCINE;GLYCYRRHIZIC ACID, AMMONIUM SALT;METHIO [Concomitant]
     Indication: Therapeutic procedure
     Dosage: 3 DF, 3X/DAY
     Route: 048
     Dates: start: 20210120, end: 20210127
  4. YI GAN LING [Concomitant]
     Indication: Therapeutic procedure
     Dosage: 3 DF, 3X/DAY
     Route: 048
     Dates: start: 20210120, end: 20210127

REACTIONS (1)
  - Hepatic function abnormal [Recovering/Resolving]

NARRATIVE: CASE EVENT DATE: 20210127
